FAERS Safety Report 14222141 (Version 1)
Quarter: 2017Q4

REPORT INFORMATION
  Report Type: Spontaneous
  Country: US (occurrence: US)
  Receive Date: 20171124
  Receipt Date: 20171124
  Transmission Date: 20180321
  Serious: No
  Sender: FDA-Public Use
  Company Number: US-009507513-1711USA004301

PATIENT
  Age: 61 Year
  Sex: Female

DRUGS (2)
  1. ACITRETIN. [Concomitant]
     Active Substance: ACITRETIN
     Indication: MYCOSIS FUNGOIDES
  2. ZOLINZA [Suspect]
     Active Substance: VORINOSTAT
     Indication: MYCOSIS FUNGOIDES
     Route: 048

REACTIONS (1)
  - Drug effect incomplete [Unknown]
